FAERS Safety Report 8953130 (Version 1)
Quarter: 2012Q4

REPORT INFORMATION
  Report Type: 
  Country: US (occurrence: US)
  Receive Date: 20121206
  Receipt Date: 20121206
  Transmission Date: 20130627
  Serious: No
  Sender: FDA-Public Use
  Company Number: US-009507513-1211USA012638

PATIENT
  Age: 82 Year
  Sex: Female

DRUGS (3)
  1. JANUVIA [Suspect]
     Indication: DIABETES MELLITUS
     Dosage: 100 mg
     Route: 048
  2. JANUVIA [Suspect]
     Dosage: one and one half of the 100 mg version
     Route: 048
  3. JANUVIA [Suspect]
     Dosage: 50 mg
     Route: 048

REACTIONS (3)
  - Drug intolerance [Unknown]
  - Wrong technique in drug usage process [Unknown]
  - Drug prescribing error [Unknown]
